FAERS Safety Report 7582296-0 (Version None)
Quarter: 2011Q2

REPORT INFORMATION
  Report Type: 
  Country: None (occurrence: None)
  Receive Date: 20110630
  Receipt Date: 20110620
  Transmission Date: 20111010
  Serious: Yes (Hospitalization)
  Sender: FDA-Public Use
  Company Number: US-BAYER-201033952NA

PATIENT
  Age: 30 Year
  Sex: Female

DRUGS (12)
  1. YASMIN [Suspect]
     Route: 048
     Dates: start: 20080101
  2. HYDROCODONE BITARTRATE AND ACETAMINOPHEN [Concomitant]
     Indication: PAIN
     Dosage: 7.5 MG/750 MG / 1 Q6 HOURS PRN
     Route: 048
     Dates: start: 20010310
  3. YASMIN [Suspect]
     Indication: PRODUCT USED FOR UNKNOWN INDICATION
     Route: 048
     Dates: start: 20020101, end: 20050101
  4. DROSPIRENONE AND ETHINYL ESTRADIOL [Suspect]
     Indication: PRODUCT USED FOR UNKNOWN INDICATION
     Route: 048
  5. HYDROCODONE BITARTRATE AND ACETAMINOPHEN [Concomitant]
     Dosage: 5 MG/500 MG / 1 Q6 HOURS PRN
     Route: 048
     Dates: start: 20040205
  6. ACETAMINOPHEN W/ CODEINE [Concomitant]
     Indication: PAIN
     Dosage: 1 Q6 HOURS PRN
     Route: 048
     Dates: start: 20040131
  7. YAZ [Suspect]
     Indication: PRODUCT USED FOR UNKNOWN INDICATION
     Route: 048
     Dates: start: 20020101, end: 20050101
  8. ULTRACET [Concomitant]
     Indication: PAIN
     Dosage: 1 Q8-12 HOURS
     Route: 048
     Dates: start: 20041230
  9. SYNTHROID [Concomitant]
  10. YAZ [Suspect]
     Route: 048
     Dates: start: 20080101
  11. BEXTRA [Concomitant]
     Indication: PRODUCT USED FOR UNKNOWN INDICATION
     Route: 048
     Dates: start: 20011030
  12. ROXICET [Concomitant]
     Indication: PAIN
     Dosage: 1 Q4 HOUR PRN
     Route: 048
     Dates: start: 20010215

REACTIONS (4)
  - GALLBLADDER DISORDER [None]
  - JAUNDICE [None]
  - THROMBOSIS [None]
  - MUSCLE SPASMS [None]
